FAERS Safety Report 5262191-2 (Version None)
Quarter: 2007Q1

REPORT INFORMATION
  Report Type: 
  Country: None (occurrence: None)
  Receive Date: 20070311
  Receipt Date: 20070228
  Transmission Date: 20070707
  Serious: Yes (Disabling)
  Sender: FDA-Public Use
  Company Number: 2006UW07828

PATIENT
  Sex: Female
  Weight: 165.9 kg

DRUGS (5)
  1. SEROQUEL [Suspect]
     Indication: SLEEP DISORDER
     Dosage: 50 - 100 MG11-AUG-
     Route: 048
     Dates: start: 20040811, end: 20060301
  2. WELLBUTRIN [Concomitant]
  3. PAXIL [Concomitant]
  4. CLONAZEPAM [Concomitant]
  5. TRAZODONE HCL [Concomitant]

REACTIONS (2)
  - DIABETES MELLITUS [None]
  - RESPIRATORY FAILURE [None]
